FAERS Safety Report 9591906 (Version 2)
Quarter: 2013Q4

REPORT INFORMATION
  Report Type: Spontaneous
  Country: US (occurrence: US)
  Receive Date: 20131004
  Receipt Date: 20131004
  Transmission Date: 20140711
  Serious: No
  Sender: FDA-Public Use
  Company Number: US-AMGEN-USASP2012081051

PATIENT
  Age: 47 Year
  Sex: Male
  Weight: 113.38 kg

DRUGS (9)
  1. ENBREL [Suspect]
     Indication: RHEUMATOID ARTHRITIS
     Dosage: 50 MG, QWK
     Route: 058
  2. METHOTREXATE [Concomitant]
     Dosage: 2.5 MG, UNK
  3. LOVASTATIN [Concomitant]
     Dosage: 10 MG, UNK
  4. LEVOTHYROXINE [Concomitant]
     Dosage: 100 MUG, UNK
  5. FOLIC ACID [Concomitant]
     Dosage: UNK
  6. ALLOPURINOL [Concomitant]
     Dosage: 100 MG, UNK
  7. NAPROSYN                           /00256201/ [Concomitant]
     Dosage: 500 MG, UNK
  8. CENTRUM                            /02217401/ [Concomitant]
     Dosage: UNK
  9. SULFASALAZIN [Concomitant]
     Dosage: 500 MG, UNK

REACTIONS (4)
  - Drug ineffective [Unknown]
  - Musculoskeletal stiffness [Unknown]
  - Pain in extremity [Unknown]
  - Local swelling [Unknown]
